FAERS Safety Report 7960382-0 (Version None)
Quarter: 2011Q4

REPORT INFORMATION
  Report Type: 
  Country: None (occurrence: None)
  Receive Date: 20111201
  Receipt Date: 20111123
  Transmission Date: 20120403
  Serious: Yes (Hospitalization)
  Sender: FDA-Public Use
  Company Number: MYVW-PR-1111S-0161

PATIENT
  Sex: Female

DRUGS (3)
  1. BENADRYL [Suspect]
     Indication: PRURITUS
     Dates: start: 20111119, end: 20111119
  2. TECHNETIUM (TC99M) (SODIUIM PERTECHNETATE TC99M) [Concomitant]
  3. MYOVIEW [Suspect]
     Indication: PRODUCT USED FOR UNKNOWN INDICATION
     Dosage: 925 MBQ, SINGLE DOSE
     Dates: start: 20111119, end: 20111119

REACTIONS (4)
  - HYPERSENSITIVITY [None]
  - CONFUSIONAL STATE [None]
  - PRURITUS [None]
  - SPEECH DISORDER [None]
